FAERS Safety Report 19887291 (Version 1)
Quarter: 2021Q3

REPORT INFORMATION
  Report Type: Spontaneous
  Country: US (occurrence: US)
  Receive Date: 20210927
  Receipt Date: 20210927
  Transmission Date: 20211014
  Serious: Yes (Other)
  Sender: FDA-Public Use
  Company Number: US-MYLANLABS-2021M1066165

PATIENT
  Age: 25 Year
  Sex: Male

DRUGS (2)
  1. TRIAMCINOLONE [Suspect]
     Active Substance: TRIAMCINOLONE
     Indication: GUTTATE PSORIASIS
     Dosage: UNK; CREAM
     Route: 065
  2. IXEKIZUMAB [Concomitant]
     Active Substance: IXEKIZUMAB
     Indication: GUTTATE PSORIASIS
     Dosage: 160 MILLIGRAM, AT WEEK 0
     Route: 058

REACTIONS (1)
  - Drug ineffective [Unknown]
